FAERS Safety Report 5067095-6 (Version None)
Quarter: 2006Q3

REPORT INFORMATION
  Report Type: 
  Country: None (occurrence: None)
  Receive Date: 20060727
  Receipt Date: 20060717
  Transmission Date: 20061208
  Serious: Yes (Life-Threatening, Hospitalization)
  Sender: FDA-Public Use
  Company Number: 2006088328

PATIENT
  Age: 59 Year
  Sex: Female
  Weight: 63 kg

DRUGS (6)
  1. ZYVOX [Suspect]
     Indication: STAPHYLOCOCCAL INFECTION
     Dosage: 600 MG (600 MG, 1 IN 1 D), ORAL
     Route: 048
     Dates: start: 20060502, end: 20060522
  2. AMLODIPINE [Concomitant]
  3. ASPIRIN TAB [Concomitant]
  4. ATORVASTATIN CALCIUM [Concomitant]
  5. FUSIDIC ACID [Concomitant]
  6. OMEPRAZOLE [Concomitant]

REACTIONS (3)
  - ANAEMIA [None]
  - BLOOD CREATININE INCREASED [None]
  - HYPOCALCAEMIA [None]
